FAERS Safety Report 5596217-3 (Version None)
Quarter: 2008Q1

REPORT INFORMATION
  Report Type: 
  Country: None (occurrence: None)
  Receive Date: 20080118
  Receipt Date: 20080115
  Transmission Date: 20080703
  Serious: Yes (Hospitalization)
  Sender: FDA-Public Use
  Company Number: DE-ABBOTT-08P-062-0433812-00

PATIENT
  Sex: Male
  Weight: 70 kg

DRUGS (1)
  1. ISOPTIN [Suspect]
     Indication: DRUG USE FOR UNKNOWN INDICATION
     Route: 048
     Dates: start: 20080115, end: 20080115

REACTIONS (3)
  - HYPERTENSION [None]
  - SUICIDE ATTEMPT [None]
  - UNEVALUABLE EVENT [None]
